FAERS Safety Report 9708791 (Version 2)
Quarter: 2013Q4

REPORT INFORMATION
  Report Type: Spontaneous
  Country: FR (occurrence: FR)
  Receive Date: 20131125
  Receipt Date: 20131125
  Transmission Date: 20140711
  Serious: Yes (Other)
  Sender: FDA-Public Use
  Company Number: FR-ASTRAZENECA-2013SE80215

PATIENT
  Age: 254 Day
  Sex: Male
  Weight: 7 kg

DRUGS (1)
  1. SYNAGIS [Suspect]
     Indication: ANTIVIRAL PROPHYLAXIS
     Dosage: ONCE
     Route: 030
     Dates: start: 20131004

REACTIONS (2)
  - Skin reaction [Recovered/Resolved]
  - Pyrexia [Recovered/Resolved]
